FAERS Safety Report 7423308-4 (Version None)
Quarter: 2011Q2

REPORT INFORMATION
  Report Type: 
  Country: None (occurrence: None)
  Receive Date: 20110419
  Receipt Date: 20110412
  Transmission Date: 20111010
  Serious: Yes (Death, Hospitalization)
  Sender: FDA-Public Use
  Company Number: US-ELI_LILLY_AND_COMPANY-US201011000827

PATIENT
  Age: 63 Year
  Sex: Male

DRUGS (19)
  1. ERLOTINIB [Suspect]
     Indication: PANCREATIC CARCINOMA METASTATIC
     Dosage: 100 MG, DAILY (1/D)
     Route: 048
     Dates: start: 20100902, end: 20101020
  2. LASIX [Concomitant]
  3. MONOPRIL [Concomitant]
  4. GLUCOTROL [Concomitant]
  5. COMPAZINE [Concomitant]
  6. CIXUTUMUMAB [Suspect]
     Indication: PANCREATIC CARCINOMA METASTATIC
     Dosage: 6 MG/KG, UNK
     Route: 042
     Dates: start: 20100902, end: 20101015
  7. LOVENOX [Concomitant]
  8. TARCEVA [Concomitant]
  9. NORCO [Concomitant]
  10. GLUCOPHAGE [Concomitant]
  11. TYLENOL                                 /SCH/ [Concomitant]
  12. AMBIEN [Concomitant]
  13. MORPHINE [Concomitant]
  14. PROZAC [Concomitant]
  15. PROTONIX [Concomitant]
  16. GEMCITABINE HYDROCHLORIDE [Suspect]
     Indication: PANCREATIC CARCINOMA METASTATIC
     Dosage: 1000 MG/M2, UNK
     Route: 042
     Dates: start: 20100902, end: 20101015
  17. ADVAIR DISKUS 100/50 [Concomitant]
  18. MIRALAX [Concomitant]
  19. SENOKOT [Concomitant]

REACTIONS (8)
  - DYSPNOEA [None]
  - PULMONARY EMBOLISM [None]
  - PNEUMONIA [None]
  - LEFT VENTRICULAR DYSFUNCTION [None]
  - HYPONATRAEMIA [None]
  - VENTRICULAR FIBRILLATION [None]
  - ACIDOSIS [None]
  - HYPERGLYCAEMIA [None]
